FAERS Safety Report 5397906-6 (Version None)
Quarter: 2007Q3

REPORT INFORMATION
  Report Type: 
  Country: None (occurrence: None)
  Receive Date: 20070723
  Receipt Date: 20070723
  Transmission Date: 20080115
  Serious: No
  Sender: FDA-Public Use
  Company Number: None

PATIENT
  Age: 31 Year
  Sex: Female
  Weight: 108.8633 kg

DRUGS (1)
  1. PROAIR HFA [Suspect]
     Indication: ASTHMA
     Dosage: 90MCG ALBUTEROL PER ACUATION EVERY 4 HOURS INHAL
     Route: 055
     Dates: start: 20070515, end: 20070615

REACTIONS (1)
  - DRUG INEFFECTIVE [None]
